FAERS Safety Report 15368456 (Version 4)
Quarter: 2018Q3

REPORT INFORMATION
  Report Type: Report from Study
  Country: CA (occurrence: CA)
  Receive Date: 20180910
  Receipt Date: 20180926
  Transmission Date: 20181010
  Serious: Yes (Death)
  Sender: FDA-Public Use
  Company Number: CA-HLSUS-2018-CA-001324

PATIENT
  Age: 65 Year
  Sex: Male

DRUGS (1)
  1. CLOZARIL [Suspect]
     Active Substance: CLOZAPINE
     Route: 048
     Dates: start: 19941002, end: 20180906

REACTIONS (5)
  - Leukocytosis [Unknown]
  - Neutrophilia [Unknown]
  - Malaise [Unknown]
  - Ileus paralytic [Unknown]
  - Death [Fatal]

NARRATIVE: CASE EVENT DATE: 20180905
